FAERS Safety Report 5144094-7 (Version None)
Quarter: 2006Q4

REPORT INFORMATION
  Report Type: 
  Country: None (occurrence: None)
  Receive Date: 20061106
  Receipt Date: 20061030
  Transmission Date: 20070319
  Serious: Yes (Hospitalization)
  Sender: FDA-Public Use
  Company Number: IT-GLAXOSMITHKLINE-B0445248A

PATIENT
  Age: 34 Year
  Sex: Female

DRUGS (1)
  1. AMOXICILLIN + CLAVULANATE POTASSIUM [Suspect]
     Indication: TONSILLITIS
     Dosage: 1G TWICE PER DAY
     Route: 048
     Dates: start: 20061024, end: 20061024

REACTIONS (2)
  - DYSPNOEA [None]
  - HYPOTENSION [None]
